FAERS Safety Report 4584734-4 (Version None)
Quarter: 2005Q1

REPORT INFORMATION
  Report Type: 
  Country: None (occurrence: None)
  Receive Date: 20050215
  Receipt Date: 20020919
  Transmission Date: 20050727
  Serious: No
  Sender: FDA-Public Use
  Company Number: C02-T-054

PATIENT
  Age: 38 Year
  Sex: Female

DRUGS (1)
  1. PHENTERMINE HYDROCHLORIDE [Suspect]
     Dosage: 1 TABLET BY MOUTH DAILY

REACTIONS (1)
  - DRUG INEFFECTIVE [None]
